FAERS Safety Report 6719251-6 (Version None)
Quarter: 2010Q2

REPORT INFORMATION
  Report Type: 
  Country: None (occurrence: None)
  Receive Date: 20100511
  Receipt Date: 20100427
  Transmission Date: 20101027
  Serious: Yes (Other)
  Sender: FDA-Public Use
  Company Number: DE-CELGENEUS-062-21880-10042350

PATIENT
  Age: 65 Year
  Sex: Female
  Weight: 45 kg

DRUGS (37)
  1. REVLIMID [Suspect]
     Indication: MYELOMA RECURRENCE
     Route: 048
     Dates: start: 20100408, end: 20100419
  2. DEXAMETHASONE [Suspect]
     Indication: MYELOMA RECURRENCE
     Route: 048
     Dates: start: 20100408, end: 20100417
  3. DEXAMETHASONE [Suspect]
     Route: 048
  4. CYCLOPHOSPHAMIDE [Suspect]
     Indication: MYELOMA RECURRENCE
     Route: 048
     Dates: start: 20100408, end: 20100418
  5. CYCLOPHOSPHAMIDE [Suspect]
     Route: 048
  6. PANTOZOL [Concomitant]
     Route: 065
     Dates: start: 20090101
  7. LYRICA [Concomitant]
     Route: 065
     Dates: start: 20090101, end: 20100410
  8. LYRICA [Concomitant]
     Route: 065
     Dates: start: 20100411
  9. AMITRIPTYLINE HCL [Concomitant]
     Indication: DEPRESSION
     Route: 065
     Dates: start: 20091016
  10. AMITRIPTYLINE HCL [Concomitant]
     Indication: PAIN
  11. COTRIM [Concomitant]
     Indication: INFECTION PROPHYLAXIS
     Route: 065
     Dates: start: 20090101
  12. ACYCLOVIR SODIUM [Concomitant]
     Indication: HERPES ZOSTER
     Route: 065
     Dates: start: 20091016
  13. LEVOTHYROXINE SODIUM [Concomitant]
     Route: 065
     Dates: start: 20100301, end: 20100406
  14. TARGIN [Concomitant]
     Indication: PAIN
     Route: 065
     Dates: start: 20090101, end: 20100412
  15. TARGIN [Concomitant]
     Route: 065
     Dates: start: 20100418
  16. DIPYRONE TAB [Concomitant]
     Indication: PAIN
     Route: 065
     Dates: start: 20100330, end: 20100406
  17. LEVOTHYROXINE SODIUM [Concomitant]
     Indication: HYPOTHYROIDISM
     Route: 065
     Dates: start: 20100407, end: 20100407
  18. LEVOTHYROXINE SODIUM [Concomitant]
     Route: 065
     Dates: start: 20100408, end: 20100408
  19. LEVOTHYROXINE SODIUM [Concomitant]
     Route: 065
     Dates: start: 20100409
  20. FENTANYL [Concomitant]
     Indication: PAIN
     Route: 062
     Dates: start: 20100407, end: 20100408
  21. FENTANYL [Concomitant]
     Route: 062
     Dates: start: 20100409, end: 20100416
  22. LAXOBERAL [Concomitant]
     Indication: CONSTIPATION
     Route: 065
     Dates: start: 20100413, end: 20100413
  23. LAXOBERAL [Concomitant]
     Route: 065
     Dates: start: 20100415, end: 20100415
  24. METOCLOPRAMIDE HYDROCHLORIDE [Concomitant]
     Indication: NAUSEA
     Route: 065
     Dates: start: 20100411, end: 20100411
  25. FLUTICASONE W/SALMETEROL [Concomitant]
     Route: 065
     Dates: start: 20100411, end: 20100411
  26. FLUTICASONE W/SALMETEROL [Concomitant]
     Route: 065
     Dates: start: 20100417, end: 20100420
  27. IBUPROFENE [Concomitant]
     Indication: PAIN
     Route: 065
     Dates: start: 20100411, end: 20100411
  28. IBUPROFENE [Concomitant]
     Route: 065
     Dates: start: 20100412, end: 20100414
  29. LASIX [Concomitant]
     Indication: PAIN
     Route: 065
     Dates: start: 20100414, end: 20100416
  30. LASIX [Concomitant]
     Route: 065
     Dates: start: 20100416, end: 20100416
  31. LASIX [Concomitant]
     Route: 065
     Dates: start: 20100416, end: 20100420
  32. DIPIDOLOR [Concomitant]
     Indication: PAIN
     Route: 065
     Dates: start: 20100410, end: 20100410
  33. MORPHINE [Concomitant]
     Indication: PAIN
     Route: 065
     Dates: start: 20100416
  34. PERFALGAN [Concomitant]
     Indication: PAIN
     Route: 065
     Dates: start: 20100418, end: 20100418
  35. KALIUM BRAUSE [Concomitant]
     Route: 065
     Dates: start: 20100419, end: 20100419
  36. DECORTIN H [Concomitant]
     Route: 065
     Dates: start: 20100416, end: 20100416
  37. FAKTU SALBE [Concomitant]
     Route: 062
     Dates: start: 20100416, end: 20100416

REACTIONS (1)
  - THROMBOCYTOPENIA [None]
